FAERS Safety Report 12186498 (Version 1)
Quarter: 2016Q1

REPORT INFORMATION
  Report Type: Spontaneous
  Country: US (occurrence: US)
  Receive Date: 20160317
  Receipt Date: 20160317
  Transmission Date: 20160526
  Serious: Yes (Hospitalization)
  Sender: FDA-Public Use
  Company Number: US-FRESENIUS KABI-FK201601326

PATIENT
  Age: 10 Year
  Sex: Male
  Weight: 46 kg

DRUGS (2)
  1. VANCOMYCIN (MANUFACTURER UNKNOWN) [Suspect]
     Active Substance: VANCOMYCIN
     Indication: CELLULITIS STAPHYLOCOCCAL
     Route: 042
  2. VANCOMYCIN (MANUFACTURER UNKNOWN) [Suspect]
     Active Substance: VANCOMYCIN
     Indication: DRUG RESISTANCE

REACTIONS (2)
  - Drug level above therapeutic [Recovering/Resolving]
  - Acute kidney injury [Recovering/Resolving]
